FAERS Safety Report 5159057-5 (Version None)
Quarter: 2006Q4

REPORT INFORMATION
  Report Type: 
  Country: None (occurrence: None)
  Receive Date: 20061128
  Receipt Date: 20061122
  Transmission Date: 20070319
  Serious: Yes (Hospitalization)
  Sender: FDA-Public Use
  Company Number: ES-ROXANE LABORATORIES, INC-2006-ES-00374ES

PATIENT
  Age: 74 Year
  Sex: Male

DRUGS (2)
  1. BISOLTUS [Suspect]
     Indication: BRONCHITIS
     Dosage: 10MG/5ML
     Route: 048
     Dates: start: 20051223, end: 20051228
  2. ACETILCISTEINA CINFA [Concomitant]
     Indication: BRONCHITIS
     Route: 048
     Dates: start: 20051223, end: 20051228

REACTIONS (3)
  - ABDOMINAL PAIN [None]
  - NAUSEA [None]
  - PANCREATITIS [None]
